FAERS Safety Report 8353546-8 (Version None)
Quarter: 2012Q2

REPORT INFORMATION
  Report Type: 
  Country: None (occurrence: None)
  Receive Date: 20120511
  Receipt Date: 20110531
  Transmission Date: 20120825
  Serious: No
  Sender: FDA-Public Use
  Company Number: US-GLAXOSMITHKLINE-A0929703A

PATIENT
  Age: 53 Year
  Sex: Female

DRUGS (4)
  1. ANTIDEPRESSANT [Concomitant]
  2. TYKERB [Suspect]
     Indication: BREAST CANCER
     Dosage: 6TAB PER DAY
     Route: 048
     Dates: start: 20110523
  3. NAUSEA MEDICATION (UNKNOWN) [Concomitant]
  4. PAIN MEDICATION [Concomitant]

REACTIONS (1)
  - NAUSEA [None]
